FAERS Safety Report 25190324 (Version 2)
Quarter: 2025Q2

REPORT INFORMATION
  Report Type: Other
  Country: US (occurrence: US)
  Receive Date: 20250411
  Receipt Date: 20250609
  Transmission Date: 20250717
  Serious: No
  Sender: ASCENT PHARMACEUTICALS INC
  Company Number: US-ASCENT-2025ASREG00038

PATIENT

DRUGS (1)
  1. METHYLPHENIDATE HYDROCHLORIDE [Suspect]
     Active Substance: METHYLPHENIDATE HYDROCHLORIDE
     Indication: Product used for unknown indication
     Route: 065

REACTIONS (13)
  - Gastrooesophageal reflux disease [Unknown]
  - Disturbance in attention [Unknown]
  - Feeling of body temperature change [Unknown]
  - Tremor [Unknown]
  - Dyspepsia [Unknown]
  - Heart rate increased [Unknown]
  - Headache [Unknown]
  - Anxiety [Unknown]
  - Dry mouth [Unknown]
  - Dry eye [Unknown]
  - Diarrhoea [Unknown]
  - Therapeutic response decreased [Unknown]
  - Product substitution issue [Unknown]
